FAERS Safety Report 4551673-4 (Version None)
Quarter: 2005Q1

REPORT INFORMATION
  Report Type: 
  Country: None (occurrence: None)
  Receive Date: 20050111
  Receipt Date: 20050103
  Transmission Date: 20050727
  Serious: Yes (Life-Threatening, Hospitalization)
  Sender: FDA-Public Use
  Company Number: A044-002-005279

PATIENT
  Age: 78 Year
  Sex: Male

DRUGS (4)
  1. ARICEPT [Suspect]
     Indication: DEMENTIA
     Dosage: 5 MG, 1 IN 1 D, ORAL
     Route: 048
     Dates: start: 20040301, end: 20041001
  2. TROMCARDIN (TROMCARDIN) [Concomitant]
  3. ENOXAPARIN SODIUM [Concomitant]
  4. EUNERAN (MELPERONE HYDROCHLORIDE) [Concomitant]

REACTIONS (6)
  - BRADYCARDIA [None]
  - DIZZINESS [None]
  - HYPOKALAEMIA [None]
  - RESTLESSNESS [None]
  - SINUS ARREST [None]
  - SYNCOPE [None]
